FAERS Safety Report 17107989 (Version 2)
Quarter: 2019Q4

REPORT INFORMATION
  Report Type: Report from Study
  Country: KR (occurrence: KR)
  Receive Date: 20191203
  Receipt Date: 20191218
  Transmission Date: 20200122
  Serious: Yes (Hospitalization)
  Sender: FDA-Public Use
  Company Number: KR-PFIZER INC-2019063203

PATIENT
  Age: 65 Year
  Sex: Male
  Weight: 69.6 kg

DRUGS (23)
  1. IRINOTECAN HCL [Suspect]
     Active Substance: IRINOTECAN HYDROCHLORIDE
     Dosage: UNK
     Route: 041
  2. DINUTUXIMAB [Suspect]
     Active Substance: DINUTUXIMAB
     Indication: SMALL CELL LUNG CANCER
     Dosage: UNK UNK, CYCLIC 1
     Route: 041
     Dates: start: 20180226
  3. DINUTUXIMAB [Suspect]
     Active Substance: DINUTUXIMAB
     Dosage: 16 MG/M2, TOTAL DAILY DOSE, CYCLE 14
     Route: 041
     Dates: start: 20181206
  4. IBUPROFEN. [Concomitant]
     Active Substance: IBUPROFEN
     Dosage: UNK
     Dates: start: 20181108, end: 20181127
  5. DINUTUXIMAB [Suspect]
     Active Substance: DINUTUXIMAB
     Dosage: 29.28 MG, TOTAL DAILY DOSE, CYCLE 13
     Route: 041
     Dates: start: 20181108
  6. MOKTIN [Concomitant]
     Dosage: UNK
     Dates: start: 20180702, end: 20181127
  7. TACENOL [Concomitant]
     Dosage: UNK
     Dates: start: 20181108, end: 20181108
  8. TACENOL [Concomitant]
     Dosage: UNK
     Dates: start: 20180928, end: 20181107
  9. MAGMIL S [Concomitant]
     Dosage: UNK
     Dates: start: 20181108, end: 20181110
  10. DINUTUXIMAB [Suspect]
     Active Substance: DINUTUXIMAB
     Dosage: UNK
     Route: 041
  11. KANITRON [Concomitant]
     Dosage: UNK
     Dates: start: 20181108, end: 20181108
  12. URSA [Concomitant]
     Active Substance: URSODIOL
     Dosage: UNK
     Dates: start: 20181108, end: 20181110
  13. CHLORPHENIRAMINE MALEATE. [Concomitant]
     Active Substance: CHLORPHENIRAMINE MALEATE
     Dosage: UNK
     Dates: start: 20181108, end: 20181108
  14. IRINOTECAN HCL [Suspect]
     Active Substance: IRINOTECAN HYDROCHLORIDE
     Indication: SMALL CELL LUNG CANCER
     Dosage: UNK UNK, CYCLIC 1
     Route: 041
     Dates: start: 20180226
  15. IRINOTECAN HCL [Suspect]
     Active Substance: IRINOTECAN HYDROCHLORIDE
     Dosage: 366 MG, TOTAL DAILY DOSE, CYCLE 13
     Route: 041
     Dates: start: 20181108, end: 20181115
  16. KANITRON [Concomitant]
     Dosage: UNK
     Dates: start: 20181109, end: 20181111
  17. SODIUM CHLORIDE. [Concomitant]
     Active Substance: SODIUM CHLORIDE
     Dosage: UNK
     Dates: start: 20181108, end: 20181108
  18. DEXTROSE. [Concomitant]
     Active Substance: DEXTROSE
     Dosage: UNK
     Dates: start: 20180226
  19. IRINOTECAN HCL [Suspect]
     Active Substance: IRINOTECAN HYDROCHLORIDE
     Dosage: UNK
     Route: 041
     Dates: start: 20180813
  20. TACENOL [Concomitant]
     Dosage: UNK
     Dates: start: 20181108, end: 20181127
  21. IRCODON [Concomitant]
     Active Substance: OXYCODONE HYDROCHLORIDE
     Dosage: UNK
     Dates: start: 20181108, end: 20181108
  22. ATROPINE SULFATE. [Concomitant]
     Active Substance: ATROPINE SULFATE
     Dosage: UNK
     Dates: start: 20181108, end: 20181108
  23. DEXAMETHASONE. [Concomitant]
     Active Substance: DEXAMETHASONE
     Dosage: UNK
     Dates: start: 20181108, end: 20181108

REACTIONS (1)
  - Pneumonia [Recovered/Resolved]

NARRATIVE: CASE EVENT DATE: 20181128
